FAERS Safety Report 5118665-8 (Version None)
Quarter: 2006Q4

REPORT INFORMATION
  Report Type: 
  Country: None (occurrence: None)
  Receive Date: 20061002
  Receipt Date: 20060915
  Transmission Date: 20070319
  Serious: Yes (Other)
  Sender: FDA-Public Use
  Company Number: 2006UW18378

PATIENT
  Age: 32 Year
  Sex: Female
  Weight: 56 kg

DRUGS (1)
  1. ZOLADEX [Suspect]
     Indication: VAGINAL HAEMORRHAGE
     Route: 058
     Dates: start: 20060620

REACTIONS (6)
  - HAEMATEMESIS [None]
  - HOT FLUSH [None]
  - HUNGER [None]
  - NAUSEA [None]
  - VAGINAL HAEMORRHAGE [None]
  - WEIGHT INCREASED [None]
